FAERS Safety Report 5741577-3 (Version None)
Quarter: 2008Q2

REPORT INFORMATION
  Report Type: 
  Country: None (occurrence: None)
  Receive Date: 20080519
  Receipt Date: 20070807
  Transmission Date: 20081010
  Serious: No
  Sender: FDA-Public Use
  Company Number: US-BAYER-US-2007-029412

PATIENT
  Age: 43 Year
  Sex: Female
  Weight: 73 kg

DRUGS (4)
  1. FLUDARA [Suspect]
     Indication: WALDENSTROM'S MACROGLOBULINAEMIA
     Route: 042
     Dates: start: 20070716, end: 20070720
  2. TRAZODONE HCL [Concomitant]
  3. XANAX [Concomitant]
  4. COMBIPATCH [Concomitant]

REACTIONS (3)
  - RASH PAPULAR [None]
  - RED BLOOD CELL COUNT DECREASED [None]
  - WHITE BLOOD CELL COUNT DECREASED [None]
